FAERS Safety Report 6793936-8 (Version None)
Quarter: 2010Q2

REPORT INFORMATION
  Report Type: 
  Country: None (occurrence: None)
  Receive Date: 20100624
  Receipt Date: 20011207
  Transmission Date: 20101027
  Serious: Yes (Hospitalization)
  Sender: FDA-Public Use
  Company Number: US-PFIZER INC-23100347

PATIENT
  Age: 50 Year
  Sex: Male

DRUGS (1)
  1. ARGATROBAN [Suspect]

REACTIONS (1)
  - HAEMORRHAGE [None]
